FAERS Safety Report 7261276-9 (Version None)
Quarter: 2011Q1

REPORT INFORMATION
  Report Type: 
  Country: None (occurrence: None)
  Receive Date: 20110130
  Receipt Date: 20100928
  Transmission Date: 20110831
  Serious: No
  Sender: FDA-Public Use
  Company Number: US-ABBOTT-10P-163-0674572-00

PATIENT
  Sex: Female
  Weight: 54.48 kg

DRUGS (6)
  1. ALLOPURINOL [Concomitant]
     Indication: GOUT
     Dosage: UNKNOWN
  2. SYNTHROID [Concomitant]
     Indication: AUTOIMMUNE THYROIDITIS
  3. ADDERALL 10 [Concomitant]
     Indication: ATTENTION DEFICIT/HYPERACTIVITY DISORDER
     Dosage: 10MG BID  TAKES MORE THAN PRESCRIBED
  4. HUMIRA [Suspect]
     Indication: RHEUMATOID ARTHRITIS
     Dates: start: 20100601, end: 20100901
  5. CHOLCHINE [Concomitant]
     Indication: GOUT
  6. GABAPENTIN [Concomitant]
     Indication: NERVE INJURY

REACTIONS (7)
  - DRY EYE [None]
  - FATIGUE [None]
  - JOINT SWELLING [None]
  - FEELING ABNORMAL [None]
  - ASTHENIA [None]
  - DRY SKIN [None]
  - TOXICITY TO VARIOUS AGENTS [None]
